FAERS Safety Report 4655905-3 (Version None)
Quarter: 2005Q2

REPORT INFORMATION
  Report Type: 
  Country: None (occurrence: None)
  Receive Date: 20050505
  Receipt Date: 20050421
  Transmission Date: 20051028
  Serious: Yes (Life-Threatening, Hospitalization)
  Sender: FDA-Public Use
  Company Number: SU1-2005-00273

PATIENT
  Age: 18 Year
  Sex: Male

DRUGS (4)
  1. PENTASA [Suspect]
     Indication: COLITIS ULCERATIVE
     Dosage: 2250 MG DAILY, ORAL
     Route: 048
     Dates: start: 20050126, end: 20050219
  2. PENTASA [Suspect]
     Indication: COLITIS ULCERATIVE
     Dosage: 2250 MG DAILY, ORAL
     Route: 048
     Dates: start: 20050303, end: 20050303
  3. PREDNISONE [Concomitant]
  4. PREDNISOLONE SODIUM SICCINATE(PREDNISOLONE SODIUM SUCCINATE) [Concomitant]

REACTIONS (3)
  - COLITIS ULCERATIVE [None]
  - DISEASE RECURRENCE [None]
  - PANCREATITIS ACUTE [None]
